FAERS Safety Report 9360942 (Version 1)
Quarter: 2013Q2

REPORT INFORMATION
  Report Type: Spontaneous
  Country: AR (occurrence: AR)
  Receive Date: 20130621
  Receipt Date: 20130621
  Transmission Date: 20140414
  Serious: Yes (Hospitalization)
  Sender: FDA-Public Use
  Company Number: AR-ABBOTT-13P-007-1104573-00

PATIENT
  Age: 35 Year
  Sex: Male

DRUGS (2)
  1. HUMIRA [Suspect]
     Indication: CROHN^S DISEASE
     Route: 058
     Dates: start: 201303
  2. MERCAPTOPURINE [Suspect]
     Indication: CROHN^S DISEASE
     Dosage: STOPPED MEDICATION WHEN HOSPITALIZED
     Route: 048
     Dates: start: 201303

REACTIONS (2)
  - Pyrexia [Recovered/Resolved]
  - Kidney infection [Recovered/Resolved]
